FAERS Safety Report 5158589-3 (Version None)
Quarter: 2006Q4

REPORT INFORMATION
  Report Type: 
  Country: None (occurrence: None)
  Receive Date: 20061128
  Receipt Date: 20061117
  Transmission Date: 20070319
  Serious: No
  Sender: FDA-Public Use
  Company Number: US-ELI_LILLY_AND_COMPANY-US200611003697

PATIENT
  Age: 56 Year
  Sex: Female

DRUGS (4)
  1. CYMBALTA [Suspect]
     Indication: DEPRESSION
     Dosage: 20 MG, DAILY (1/D)
     Dates: start: 20060101, end: 20061108
  2. PRINZIDE [Concomitant]
  3. CRESTOR [Concomitant]
  4. NEXIUM [Concomitant]

REACTIONS (3)
  - FEELING ABNORMAL [None]
  - HEPATIC ENZYME INCREASED [None]
  - VERTIGO [None]
